FAERS Safety Report 5997167-0 (Version None)
Quarter: 2008Q4

REPORT INFORMATION
  Report Type: 
  Country: None (occurrence: None)
  Receive Date: 20081212
  Receipt Date: 20081104
  Transmission Date: 20090506
  Serious: No
  Sender: FDA-Public Use
  Company Number: US-ABBOTT-08P-163-0485607-00

PATIENT
  Sex: Female

DRUGS (5)
  1. HUMIRA [Suspect]
     Indication: PSORIASIS
     Dates: start: 20081031
  2. HUMIRA [Suspect]
     Indication: CROHN'S DISEASE
  3. HUMIRA [Suspect]
  4. HUMIRA [Suspect]
  5. INFLUENZA VIRUS VACCINE POLYVALENT [Concomitant]
     Indication: DRUG USE FOR UNKNOWN INDICATION
     Dates: start: 20081030, end: 20081030

REACTIONS (1)
  - ORAL HERPES [None]
